FAERS Safety Report 21167654 (Version 2)
Quarter: 2022Q3

REPORT INFORMATION
  Report Type: Spontaneous
  Country: FR (occurrence: FR)
  Receive Date: 20220803
  Receipt Date: 20220908
  Transmission Date: 20221026
  Serious: Yes (Hospitalization)
  Sender: FDA-Public Use
  Company Number: FR-JNJFOC-20220757360

PATIENT
  Sex: Female

DRUGS (2)
  1. SPRAVATO [Suspect]
     Active Substance: ESKETAMINE
     Indication: Depression
     Dosage: FOR 2 MONTHS
  2. SPRAVATO [Suspect]
     Active Substance: ESKETAMINE
     Indication: Suicide attempt

REACTIONS (2)
  - Depression [Unknown]
  - Drug ineffective [Unknown]
